FAERS Safety Report 12745955 (Version 1)
Quarter: 2016Q3

REPORT INFORMATION
  Report Type: Spontaneous
  Country: US (occurrence: US)
  Receive Date: 20160915
  Receipt Date: 20160915
  Transmission Date: 20161109
  Serious: Yes (Hospitalization, Other)
  Sender: FDA-Public Use
  Company Number: US-GLAXOSMITHKLINE-US2016134034

PATIENT
  Age: 69 Year
  Sex: Female

DRUGS (11)
  1. NYSTATIN. [Concomitant]
     Active Substance: NYSTATIN
  2. FENOFIBRATE. [Concomitant]
     Active Substance: FENOFIBRATE
  3. ANORO ELLIPTA [Suspect]
     Active Substance: UMECLIDINIUM BROMIDE\VILANTEROL TRIFENATATE
     Indication: CHRONIC OBSTRUCTIVE PULMONARY DISEASE
     Dosage: 1 PUFF(S), 1D
     Route: 055
     Dates: start: 201607
  4. VALSARTAN. [Concomitant]
     Active Substance: VALSARTAN
  5. PRAVASTATIN. [Concomitant]
     Active Substance: PRAVASTATIN
  6. ASPIRIN 81 [Concomitant]
     Active Substance: ASPIRIN
  7. CLOTRIMAZOLE. [Concomitant]
     Active Substance: CLOTRIMAZOLE
  8. FISH OIL [Concomitant]
     Active Substance: FISH OIL
  9. PLAVIX [Concomitant]
     Active Substance: CLOPIDOGREL BISULFATE
  10. ALBUTEROL. [Concomitant]
     Active Substance: ALBUTEROL
  11. PANTOPRAZOLE [Concomitant]
     Active Substance: PANTOPRAZOLE SODIUM

REACTIONS (4)
  - Arterial therapeutic procedure [Recovering/Resolving]
  - Stent placement [Recovering/Resolving]
  - Condition aggravated [Unknown]
  - Candida infection [Not Recovered/Not Resolved]

NARRATIVE: CASE EVENT DATE: 201607
